FAERS Safety Report 25298631 (Version 1)
Quarter: 2025Q2

REPORT INFORMATION
  Report Type: Spontaneous
  Country: KR (occurrence: KR)
  Receive Date: 20250512
  Receipt Date: 20250512
  Transmission Date: 20250717
  Serious: Yes (Hospitalization)
  Sender: CELLTRION
  Company Number: KR-CELLTRION INC.-2024KR031886

PATIENT

DRUGS (29)
  1. VEGZELMA [Suspect]
     Active Substance: BEVACIZUMAB-ADCD
     Indication: Colorectal cancer metastatic
     Dosage: 300 MG, Q2W
     Route: 042
     Dates: start: 20240517, end: 20241119
  2. VEGZELMA [Suspect]
     Active Substance: BEVACIZUMAB-ADCD
     Dosage: 300 MG, Q2W
     Route: 042
     Dates: start: 20240531, end: 20241119
  3. VEGZELMA [Suspect]
     Active Substance: BEVACIZUMAB-ADCD
     Dosage: 300 MG, Q2W
     Route: 042
     Dates: start: 20240614, end: 20241119
  4. VEGZELMA [Suspect]
     Active Substance: BEVACIZUMAB-ADCD
     Dosage: 300 MG, Q2W
     Route: 042
     Dates: start: 20240628, end: 20241119
  5. VEGZELMA [Suspect]
     Active Substance: BEVACIZUMAB-ADCD
     Dosage: 293.5 MG, Q2W
     Route: 042
     Dates: start: 20240713, end: 20241119
  6. VEGZELMA [Suspect]
     Active Substance: BEVACIZUMAB-ADCD
     Dosage: 298 MG, Q2W
     Route: 042
     Dates: start: 20240726, end: 20241119
  7. VEGZELMA [Suspect]
     Active Substance: BEVACIZUMAB-ADCD
     Dosage: 298 MG, Q2W
     Route: 042
     Dates: start: 20240809, end: 20241119
  8. VEGZELMA [Suspect]
     Active Substance: BEVACIZUMAB-ADCD
     Dosage: 293.2 MG, Q2W
     Route: 042
     Dates: start: 20240824, end: 20241119
  9. VEGZELMA [Suspect]
     Active Substance: BEVACIZUMAB-ADCD
     Dosage: 286.5 MG, Q2W
     Route: 042
     Dates: start: 20240907, end: 20241119
  10. VEGZELMA [Suspect]
     Active Substance: BEVACIZUMAB-ADCD
     Dosage: 287.7 MG, Q2W
     Route: 042
     Dates: start: 20240921, end: 20241119
  11. VEGZELMA [Suspect]
     Active Substance: BEVACIZUMAB-ADCD
     Dosage: 282.5 MG, Q2W
     Route: 042
     Dates: start: 20241008, end: 20241119
  12. VEGZELMA [Suspect]
     Active Substance: BEVACIZUMAB-ADCD
     Dosage: 275 MG, Q2W
     Route: 042
     Dates: start: 20241022, end: 20241119
  13. VEGZELMA [Suspect]
     Active Substance: BEVACIZUMAB-ADCD
     Dosage: 270 MG, Q2W
     Route: 042
     Dates: start: 20241105, end: 20241119
  14. VEGZELMA [Suspect]
     Active Substance: BEVACIZUMAB-ADCD
     Dosage: 265.7 MG, Q2W
     Route: 042
     Dates: start: 20241119, end: 20241119
  15. FLUOROURACIL [Concomitant]
     Active Substance: FLUOROURACIL
     Indication: Colorectal cancer metastatic
     Dates: start: 20240420
  16. IRINOTECAN [Concomitant]
     Active Substance: IRINOTECAN
     Indication: Colorectal cancer metastatic
     Dates: start: 20240420
  17. NEBIVOLOL [Concomitant]
     Active Substance: NEBIVOLOL
     Indication: Ventricular fibrillation
     Route: 048
     Dates: start: 20240413
  18. ISOSORBIDE MONONITRATE [Concomitant]
     Active Substance: ISOSORBIDE MONONITRATE
     Indication: Ventricular fibrillation
     Route: 048
     Dates: start: 20240413
  19. ATOZETI [Concomitant]
     Indication: Ventricular fibrillation
     Route: 048
     Dates: start: 20240413
  20. ASPIRIN [Concomitant]
     Active Substance: ASPIRIN
     Indication: Ventricular fibrillation
     Route: 048
     Dates: start: 20240413
  21. LANSOPRAZOLE [Concomitant]
     Active Substance: LANSOPRAZOLE
     Indication: Pain prophylaxis
     Route: 048
     Dates: start: 20240423
  22. LEUCOVORIN CALCIUM [Concomitant]
     Active Substance: LEUCOVORIN CALCIUM
     Indication: Chemotherapy side effect prophylaxis
     Route: 042
     Dates: start: 2024
  23. YOOSETRON [Concomitant]
     Indication: Prophylaxis of nausea and vomiting
     Route: 042
     Dates: start: 20240419
  24. PENIRAMIN [Concomitant]
     Indication: Chemotherapy side effect prophylaxis
     Route: 042
     Dates: start: 20240417
  25. OXYCODONE HYDROCHLORIDE [Concomitant]
     Active Substance: OXYCODONE HYDROCHLORIDE
     Indication: Pain prophylaxis
     Route: 048
     Dates: start: 20240424
  26. ATROPINE [Concomitant]
     Active Substance: ATROPINE
     Indication: Premedication
     Route: 042
     Dates: start: 20240420
  27. HEPARIN SODIUM [Concomitant]
     Active Substance: HEPARIN SODIUM
     Indication: Central venous catheterisation
     Route: 042
     Dates: start: 20240417
  28. NEUPOGEN [Concomitant]
     Active Substance: FILGRASTIM
     Indication: Premedication
     Route: 042
     Dates: start: 20240422
  29. DEXAMETHASONE SODIUM PHOSPHATE [Concomitant]
     Active Substance: DEXAMETHASONE SODIUM PHOSPHATE
     Indication: Premedication
     Route: 042
     Dates: start: 20240419

REACTIONS (7)
  - Gastrointestinal stoma complication [Recovered/Resolved]
  - Hernia [Recovered/Resolved]
  - Pruritus [Recovered/Resolved]
  - Toothache [Recovering/Resolving]
  - Headache [Recovering/Resolving]
  - Vomiting [Recovering/Resolving]
  - Abdominal pain [Recovering/Resolving]

NARRATIVE: CASE EVENT DATE: 20240517
